FAERS Safety Report 12898153 (Version 2)
Quarter: 2017Q1

REPORT INFORMATION
  Report Type: Spontaneous
  Country: IN (occurrence: IN)
  Receive Date: 20161031
  Receipt Date: 20170104
  Transmission Date: 20170428
  Serious: Yes (Hospitalization)
  Sender: FDA-Public Use
  Company Number: IN-GE HEALTHCARE MEDICAL DIAGNOSTICS-OMPQ-PR-1610S-1982

PATIENT
  Age: 42 Year
  Sex: Female

DRUGS (7)
  1. F-CHOLINE [Concomitant]
  2. OMNIPAQUE [Suspect]
     Active Substance: IOHEXOL
     Indication: HICCUPS
  3. OMNIPAQUE [Suspect]
     Active Substance: IOHEXOL
     Indication: ABDOMINAL PAIN
     Route: 042
     Dates: start: 20161020, end: 20161020
  4. OMNIPAQUE [Suspect]
     Active Substance: IOHEXOL
     Indication: VOMITING
  5. OMNIPAQUE [Suspect]
     Active Substance: IOHEXOL
     Indication: DIAGNOSTIC PROCEDURE
  6. OMNIPAQUE [Suspect]
     Active Substance: IOHEXOL
     Indication: NAUSEA
  7. AVIL [Concomitant]
     Active Substance: PHENIRAMINE

REACTIONS (2)
  - Skin discolouration [Recovered/Resolved]
  - Hypotension [Recovered/Resolved]

NARRATIVE: CASE EVENT DATE: 20161020
